FAERS Safety Report 7355029-0 (Version None)
Quarter: 2011Q1

REPORT INFORMATION
  Report Type: 
  Country: None (occurrence: None)
  Receive Date: 20110311
  Receipt Date: 20110311
  Transmission Date: 20110831
  Serious: Yes (Life-Threatening)
  Sender: FDA-Public Use
  Company Number: None

PATIENT
  Sex: Male
  Weight: 89.3586 kg

DRUGS (1)
  1. SYMBICORT [Suspect]
     Dosage: 1 PUFF/TWICE A DAY USE ONLY ONE TIME

REACTIONS (2)
  - ILL-DEFINED DISORDER [None]
  - FALL [None]
